FAERS Safety Report 5639860-5 (Version None)
Quarter: 2008Q1

REPORT INFORMATION
  Report Type: 
  Country: None (occurrence: None)
  Receive Date: 20080225
  Receipt Date: 20080213
  Transmission Date: 20080703
  Serious: No
  Sender: FDA-Public Use
  Company Number: B0507107A

PATIENT
  Age: 9 Year
  Sex: Male

DRUGS (2)
  1. RELENZA [Suspect]
     Indication: INFLUENZA
     Dosage: TWICE PER DAY / INHALED
     Route: 055
     Dates: start: 20080121, end: 20080126
  2. ACETAMINOPHEN [Concomitant]

REACTIONS (1)
  - ABNORMAL BEHAVIOUR [None]
